FAERS Safety Report 9820428 (Version 1)
Quarter: 2013Q4

REPORT INFORMATION
  Report Type: Spontaneous
  Country: US (occurrence: None)
  Receive Date: 20131028
  Receipt Date: 20131028
  Transmission Date: 20140711
  Serious: Yes (Other)
  Sender: FDA-Public Use
  Company Number: 2013US001613

PATIENT
  Age: 53 Year
  Sex: Female
  Weight: 64 kg

DRUGS (3)
  1. ICLUSIG [Suspect]
     Indication: CHRONIC MYELOID LEUKAEMIA
     Route: 048
     Dates: end: 20130425
  2. VITAMIN D3 (VITAMIN D3) [Concomitant]
  3. MULTIVITAMIN (VITAMINS NOS) [Concomitant]

REACTIONS (2)
  - Platelet count decreased [None]
  - Drug ineffective [None]
